FAERS Safety Report 8339446-8 (Version None)
Quarter: 2012Q2

REPORT INFORMATION
  Report Type: 
  Country: None (occurrence: None)
  Receive Date: 20120502
  Receipt Date: 20120416
  Transmission Date: 20120825
  Serious: Yes (Death, Other)
  Sender: FDA-Public Use
  Company Number: 2012MA005102

PATIENT

DRUGS (1)
  1. GABAPENTIN [Suspect]

REACTIONS (1)
  - DRUG DEPENDENCE [None]
